FAERS Safety Report 20553752 (Version 15)
Quarter: 2022Q2

REPORT INFORMATION
  Report Type: Report from Study
  Country: TR (occurrence: None)
  Receive Date: 20220304
  Receipt Date: 20220630
  Transmission Date: 20220721
  Serious: Yes (Hospitalization)
  Sender: FDA-Public Use
  Company Number: TR-Eisai Medical Research-EC-2022-109762

PATIENT
  Age: 62 Year
  Sex: Male
  Weight: 66 kg

DRUGS (8)
  1. LENVATINIB [Suspect]
     Active Substance: LENVATINIB
     Indication: Clear cell renal cell carcinoma
     Route: 048
     Dates: start: 20220203, end: 20220222
  2. LENVATINIB [Suspect]
     Active Substance: LENVATINIB
     Dosage: DOSE REDUCED
     Route: 048
     Dates: start: 20220303, end: 20220524
  3. QUAVONLIMAB [Suspect]
     Active Substance: QUAVONLIMAB
     Indication: Clear cell renal cell carcinoma
     Dosage: QUAVONLIMAB 25 MG + PEMBROLIZUMAB 400 MG
     Route: 042
     Dates: start: 20220203, end: 20220203
  4. PEMBROLIZUMAB [Suspect]
     Active Substance: PEMBROLIZUMAB
     Dosage: QUAVONLIMAB 25 MG + PEMBROLIZUMAB 400 MG
     Route: 042
     Dates: start: 20220317, end: 20220428
  5. LANSOPRAZOLE [Concomitant]
     Active Substance: LANSOPRAZOLE
     Dates: start: 202112
  6. PERINDOPRIL ERBUMINE [Concomitant]
     Active Substance: PERINDOPRIL ERBUMINE
     Dates: start: 201102
  7. ALDACTONE [Concomitant]
     Active Substance: SPIRONOLACTONE
     Dates: start: 202102
  8. CYANOCOBALAMIN\PYRIDOXINE\THIAMINE [Concomitant]
     Active Substance: CYANOCOBALAMIN\PYRIDOXINE\THIAMINE
     Dates: start: 202112

REACTIONS (1)
  - Neutropenia [Recovered/Resolved]

NARRATIVE: CASE EVENT DATE: 20220223
